FAERS Safety Report 21332710 (Version 1)
Quarter: 2022Q3

REPORT INFORMATION
  Report Type: Spontaneous
  Country: US (occurrence: US)
  Receive Date: 20220914
  Receipt Date: 20220914
  Transmission Date: 20221027
  Serious: Yes (Hospitalization, Other)
  Sender: FDA-Public Use
  Company Number: US-Accord-276981

PATIENT
  Age: 31 Year
  Sex: Male

DRUGS (2)
  1. CLOZAPINE [Suspect]
     Active Substance: CLOZAPINE
     Indication: Schizoaffective disorder bipolar type
     Dosage: UP-TITRATED TO 25MG TWICE DAILY ON DAY-3, UPTITRATED BY 12.5MG PER DOSE EVERY TWO DAYS
     Route: 048
  2. CLOZAPINE [Suspect]
     Active Substance: CLOZAPINE
     Indication: Schizoaffective disorder bipolar type
     Dosage: UP TO A MAXIMUM OF 200MG TWICE DAILY ON DAY 10, 100MG ON DAY-15 OF ADMISSION

REACTIONS (4)
  - Cardiotoxicity [Recovered/Resolved]
  - Leukocytosis [Unknown]
  - Sinus tachycardia [Recovered/Resolved]
  - Ejection fraction decreased [Recovered/Resolved]
